FAERS Safety Report 20181366 (Version 1)
Quarter: 2021Q4

REPORT INFORMATION
  Report Type: Spontaneous
  Country: FR (occurrence: FR)
  Receive Date: 20211214
  Receipt Date: 20211214
  Transmission Date: 20220303
  Serious: Yes (Hospitalization)
  Sender: FDA-Public Use
  Company Number: None

PATIENT
  Age: 81 Year
  Sex: Male
  Weight: 90 kg

DRUGS (5)
  1. DAPTOMYCIN [Suspect]
     Active Substance: DAPTOMYCIN
     Indication: Osteitis
     Dosage: 750 MILLIGRAM, QD
     Route: 041
     Dates: start: 20210512, end: 20210531
  2. PIPERACILLIN SODIUM\TAZOBACTAM SODIUM [Suspect]
     Active Substance: PIPERACILLIN SODIUM\TAZOBACTAM SODIUM
     Indication: Osteitis
     Dosage: 12 GRAM, QD
     Route: 041
     Dates: start: 20210512, end: 20210531
  3. NEBIVOLOL HYDROCHLORIDE [Concomitant]
     Active Substance: NEBIVOLOL HYDROCHLORIDE
     Dosage: UNK
  4. PERINDOPRIL [Concomitant]
     Active Substance: PERINDOPRIL
     Dosage: UNK
  5. CAFFEINE\PHENOBARBITAL [Concomitant]
     Active Substance: CAFFEINE\PHENOBARBITAL
     Dosage: UNK

REACTIONS (2)
  - Lung disorder [Recovered/Resolved]
  - Extrasystoles [Recovering/Resolving]

NARRATIVE: CASE EVENT DATE: 20210531
